FAERS Safety Report 21055536 (Version 1)
Quarter: 2022Q3

REPORT INFORMATION
  Report Type: Spontaneous
  Country: US (occurrence: US)
  Receive Date: 20220708
  Receipt Date: 20220708
  Transmission Date: 20221027
  Serious: No
  Sender: FDA-Public Use
  Company Number: US-BRISTOL-MYERS SQUIBB COMPANY-2022-069560

PATIENT
  Age: 64 Year
  Sex: Male
  Weight: 6.15 kg

DRUGS (1)
  1. POMALYST [Suspect]
     Active Substance: POMALIDOMIDE
     Indication: Plasma cell myeloma
     Dosage: FREQ-21D ON 7D OFF
     Route: 048

REACTIONS (4)
  - Diarrhoea [Unknown]
  - Dizziness [Unknown]
  - Chills [Unknown]
  - Pyrexia [Unknown]
